FAERS Safety Report 25807960 (Version 2)
Quarter: 2025Q3

REPORT INFORMATION
  Report Type: Spontaneous
  Country: US (occurrence: US)
  Receive Date: 20250916
  Receipt Date: 20250929
  Transmission Date: 20251020
  Serious: No
  Sender: BRISTOL-MYERS SQUIBB COMPANY
  Company Number: US-BRISTOL-MYERS SQUIBB COMPANY-2025-127425

PATIENT
  Age: 69 Year
  Sex: Male

DRUGS (1)
  1. LENALIDOMIDE [Suspect]
     Active Substance: LENALIDOMIDE
     Indication: Plasma cell myeloma
     Dosage: TAKE 1 CAPSULE BY MOUTH EVERY OTHER DAY FOR 14 DAYS?THEN 7 DAYS OFF

REACTIONS (4)
  - Blood blister [Recovering/Resolving]
  - Rash [Recovering/Resolving]
  - Blood test abnormal [Recovered/Resolved]
  - Renal function test abnormal [Not Recovered/Not Resolved]
